FAERS Safety Report 22190125 (Version 2)
Quarter: 2023Q2

REPORT INFORMATION
  Report Type: Spontaneous
  Country: JP (occurrence: JP)
  Receive Date: 20230410
  Receipt Date: 20230525
  Transmission Date: 20230721
  Serious: Yes (Other)
  Sender: FDA-Public Use
  Company Number: JP-JNJFOC-20230414244

PATIENT
  Age: 6 Year
  Sex: Female

DRUGS (1)
  1. RISPERDAL [Suspect]
     Active Substance: RISPERIDONE
     Indication: Anger
     Dosage: 0.3MG (IN THE MORNING 0.1MG, IN THE EVENING 0.2MG) PER DAY
     Route: 048

REACTIONS (2)
  - Growth retardation [Unknown]
  - Off label use [Unknown]
